FAERS Safety Report 5115106-1 (Version None)
Quarter: 2006Q3

REPORT INFORMATION
  Report Type: 
  Country: None (occurrence: None)
  Receive Date: 20060925
  Receipt Date: 20060925
  Transmission Date: 20061208
  Serious: Yes (Life-Threatening, Hospitalization)
  Sender: FDA-Public Use
  Company Number: None

PATIENT
  Age: 27 Year
  Sex: Female
  Weight: 90.7194 kg

DRUGS (1)
  1. PROMETRIUM [Suspect]
     Indication: PROGESTERONE DECREASED
     Dosage: 100 MG BID PO
     Route: 048
     Dates: start: 20060810, end: 20060915

REACTIONS (5)
  - BACK PAIN [None]
  - DRUG EXPOSURE DURING PREGNANCY [None]
  - IMPAIRED WORK ABILITY [None]
  - PAIN [None]
  - THROMBOSIS [None]
